FAERS Safety Report 21577742 (Version 1)
Quarter: 2022Q4

REPORT INFORMATION
  Report Type: Spontaneous
  Country: US (occurrence: US)
  Receive Date: 20221110
  Receipt Date: 20221110
  Transmission Date: 20230113
  Serious: No
  Sender: FDA-Public Use
  Company Number: US-PFIZER INC-202201289976

PATIENT
  Age: 58 Year
  Sex: Female

DRUGS (2)
  1. IBRANCE [Suspect]
     Active Substance: PALBOCICLIB
     Dosage: 125 MG, CYCLIC: 3 WEEKS ON AND 1 WEEK OFF
  2. LETROZOLE [Suspect]
     Active Substance: LETROZOLE
     Dosage: UNK

REACTIONS (5)
  - Alopecia [Unknown]
  - Epistaxis [Recovering/Resolving]
  - Dry eye [Unknown]
  - Nasal dryness [Unknown]
  - Dry mouth [Unknown]
